FAERS Safety Report 8788833 (Version 1)
Quarter: 2012Q4

REPORT INFORMATION
  Report Type: 
  Country: US (occurrence: US)
  Receive Date: 20120917
  Receipt Date: 20120917
  Transmission Date: 20130627
  Serious: No
  Sender: FDA-Public Use
  Company Number: US-PFIZER INC-2012227422

PATIENT
  Sex: Male

DRUGS (2)
  1. CABERGOLINE [Suspect]
     Dosage: UNK
  2. OCTREOTIDE [Suspect]
     Dosage: UNK

REACTIONS (2)
  - Blood growth hormone decreased [Unknown]
  - Drug effect incomplete [Unknown]
